FAERS Safety Report 21367207 (Version 1)
Quarter: 2022Q3

REPORT INFORMATION
  Report Type: Spontaneous
  Country: US (occurrence: US)
  Receive Date: 20220923
  Receipt Date: 20220923
  Transmission Date: 20221026
  Serious: No
  Sender: FDA-Public Use
  Company Number: US-SA-SAC20220919001176

PATIENT
  Age: 63 Year
  Sex: Female

DRUGS (15)
  1. KEVZARA [Suspect]
     Active Substance: SARILUMAB
     Indication: Rheumatoid arthritis
     Dosage: 200 MG, QOW
     Route: 058
  2. VITAMIN D NOS [Concomitant]
     Active Substance: VITAMIN D NOS
  3. BUPROPION HYDROCHLORIDE [Concomitant]
     Active Substance: BUPROPION HYDROCHLORIDE
  4. CALCIUM [Concomitant]
     Active Substance: CALCIUM
  5. ESCITALOPRAM [Concomitant]
     Active Substance: ESCITALOPRAM OXALATE
  6. HUMIRA [Concomitant]
     Active Substance: ADALIMUMAB
  7. IRON [Concomitant]
     Active Substance: IRON
  8. LEFLUNOMIDE [Concomitant]
     Active Substance: LEFLUNOMIDE
  9. METFORMIN HYDROCHLORIDE [Concomitant]
     Active Substance: METFORMIN HYDROCHLORIDE
  10. METOPROLOL TARTRATE [Concomitant]
     Active Substance: METOPROLOL TARTRATE
  11. NOVOLOG [Concomitant]
     Active Substance: INSULIN ASPART
  12. OZEMPIC [Concomitant]
     Active Substance: SEMAGLUTIDE
  13. PANTOPRAZOLE [Concomitant]
     Active Substance: PANTOPRAZOLE
  14. PREDNISONE [Concomitant]
     Active Substance: PREDNISONE
  15. VITAMIN B [Concomitant]
     Active Substance: VITAMIN B

REACTIONS (2)
  - Arthralgia [Unknown]
  - Foot fracture [Unknown]
